FAERS Safety Report 9183580 (Version 3)
Quarter: 2013Q2

REPORT INFORMATION
  Report Type: Spontaneous
  Country: US (occurrence: US)
  Receive Date: 20130322
  Receipt Date: 20130408
  Transmission Date: 20140414
  Serious: Yes (Other)
  Sender: FDA-Public Use
  Company Number: US-JNJFOC-20130310607

PATIENT
  Age: 78 Year
  Sex: Male
  Weight: 117.94 kg

DRUGS (4)
  1. ZYRTEC IR [Suspect]
     Route: 048
  2. ZYRTEC IR [Suspect]
     Indication: MULTIPLE ALLERGIES
     Route: 048
     Dates: start: 20130308, end: 20130311
  3. MULTIPLE VITAMINS [Concomitant]
     Indication: MEDICAL DIET
     Route: 065
  4. FELODIPINE ER [Concomitant]
     Indication: HYPERTENSION
     Route: 065

REACTIONS (3)
  - Blood pressure decreased [Recovered/Resolved]
  - Dizziness [Recovered/Resolved]
  - Drug administered to patient of inappropriate age [Unknown]
